FAERS Safety Report 5944429-9 (Version None)
Quarter: 2008Q4

REPORT INFORMATION
  Report Type: 
  Country: None (occurrence: None)
  Receive Date: 20081021
  Receipt Date: 20071218
  Transmission Date: 20090506
  Serious: Yes (Other)
  Sender: FDA-Public Use
  Company Number: US-WYE-H01927008

PATIENT
  Age: 37 Year
  Sex: Female
  Weight: 82.63 kg

DRUGS (1)
  1. PREMARIN [Suspect]
     Indication: MENOPAUSAL SYMPTOMS
     Dosage: 45 MG 1X PER 1 DAY, ORAL
     Route: 048
     Dates: start: 20071114, end: 20071116

REACTIONS (4)
  - CONDITION AGGRAVATED [None]
  - FLUSHING [None]
  - MOOD SWINGS [None]
  - URTICARIA [None]
